FAERS Safety Report 21527524 (Version 1)
Quarter: 2022Q4

REPORT INFORMATION
  Report Type: Spontaneous
  Country: CN (occurrence: CN)
  Receive Date: 20221031
  Receipt Date: 20221031
  Transmission Date: 20230113
  Serious: Yes (Hospitalization, Other)
  Sender: FDA-Public Use
  Company Number: CN-MLMSERVICE-20221014-3860605-1

PATIENT
  Age: 33 Year
  Sex: Female

DRUGS (3)
  1. CISPLATIN [Suspect]
     Active Substance: CISPLATIN
     Indication: Ovarian germ cell teratoma
     Dosage: CUMULATIVE DOSE -3 CYCLICAL
     Dates: end: 202203
  2. ETOPOSIDE [Suspect]
     Active Substance: ETOPOSIDE
     Indication: Ovarian germ cell teratoma
     Dosage: CUMULATIVE DOSE -3 CYCLICAL
     Dates: end: 202203
  3. BLEOMYCIN [Suspect]
     Active Substance: BLEOMYCIN SULFATE
     Indication: Ovarian germ cell teratoma
     Dosage: CUMULATIVE DOSE -3 CYCLICAL
     Dates: end: 202203

REACTIONS (2)
  - Peritoneal gliomatosis [Recovered/Resolved]
  - Growing teratoma syndrome [Recovered/Resolved]

NARRATIVE: CASE EVENT DATE: 20220301
